FAERS Safety Report 4807985-X (Version None)
Quarter: 2005Q4

REPORT INFORMATION
  Report Type: 
  Country: None (occurrence: None)
  Receive Date: 20051021
  Receipt Date: 20051012
  Transmission Date: 20060501
  Serious: Yes (Death)
  Sender: FDA-Public Use
  Company Number: USA-2005-0021608

PATIENT
  Age: 50 Year
  Sex: Male

DRUGS (1)
  1. MORPHINE [Suspect]
     Indication: PAIN IN EXTREMITY

REACTIONS (2)
  - OXYGEN SATURATION DECREASED [None]
  - SUDDEN CARDIAC DEATH [None]
